FAERS Safety Report 5118171-0 (Version None)
Quarter: 2006Q3

REPORT INFORMATION
  Report Type: 
  Country: None (occurrence: None)
  Receive Date: 20060926
  Receipt Date: 20060913
  Transmission Date: 20061208
  Serious: Yes (Hospitalization)
  Sender: FDA-Public Use
  Company Number: 2006112989

PATIENT
  Age: 85 Year
  Sex: Female

DRUGS (7)
  1. HYDROXYZINE HYDROCHLORIDE [Suspect]
     Dosage: 50 MG (25 MG, 2 IN 1 D), ORAL
     Route: 048
     Dates: start: 20060708, end: 20060803
  2. LEXOMIL (BROMAZEPAM) [Suspect]
     Dosage: 1.5 MG (1 D), ORAL
     Route: 048
     Dates: start: 20060709, end: 20060803
  3. DEPAKENE [Suspect]
     Dosage: 400 MG (200 MG, 2 IN 1 D), ORAL
     Route: 048
     Dates: start: 20060515, end: 20060803
  4. DIGOXIN [Concomitant]
  5. COZAAR [Concomitant]
  6. SOTALOL HCL [Concomitant]
  7. PREVISCAN (FLUINDIONE) [Concomitant]

REACTIONS (2)
  - CONFUSIONAL STATE [None]
  - GENERAL PHYSICAL HEALTH DETERIORATION [None]
